FAERS Safety Report 8407572-0 (Version None)
Quarter: 2012Q2

REPORT INFORMATION
  Report Type: 
  Country: None (occurrence: None)
  Receive Date: 20120529
  Receipt Date: 19970829
  Transmission Date: 20120825
  Serious: Yes (Other)
  Sender: FDA-Public Use
  Company Number: 002581

PATIENT
  Age: 80 Year
  Sex: Female

DRUGS (2)
  1. PLETAL [Suspect]
     Dosage: 100 MG, DAILY DOSE, ORAL
     Route: 048
     Dates: start: 19951222, end: 19970102
  2. GLYBURIDE [Concomitant]

REACTIONS (4)
  - PLATELET COUNT INCREASED [None]
  - HERPES ZOSTER [None]
  - IRON DEFICIENCY ANAEMIA [None]
  - MARROW HYPERPLASIA [None]
